FAERS Safety Report 8302540 (Version 2)
Quarter: 2020Q3

REPORT INFORMATION
  Report Type: Other
  Country: US (occurrence: US)
  Receive Date: 20111220
  Receipt Date: 20200929
  Transmission Date: 20201103
  Serious: Yes (Death, Other)
  Sender: FDA-Public Use
  Company Number: US-ROCHE-1020814

PATIENT

DRUGS (6)
  1. MITOXANTRONE [Suspect]
     Active Substance: MITOXANTRONE HYDROCHLORIDE
     Indication: B-CELL LYMPHOMA
     Dosage: ON DAY 2
     Route: 065
  2. DEXAMETHASONE. [Suspect]
     Active Substance: DEXAMETHASONE
     Indication: B-CELL LYMPHOMA
     Dosage: DAYS 2?6 OF 28 DAYS CYCLE
     Route: 065
  3. YTTRIUM 90 IBRITUMOMAB TIUXETAN [Suspect]
     Active Substance: IBRITUMOMAB TIUXETAN
     Indication: B-CELL LYMPHOMA
     Dosage: 90Y IBRUTUMOMAB AT A DOSE OF 11.21 MBQ/KG 0.3 TO 0.4 MCI/KG ON DAY 8
     Route: 065
  4. YTTRIUM 90 IBRITUMOMAB TIUXETAN [Suspect]
     Active Substance: IBRITUMOMAB TIUXETAN
     Indication: B-CELL LYMPHOMA
     Route: 065
  5. RITUXIMAB. [Suspect]
     Active Substance: RITUXIMAB
     Indication: B-CELL LYMPHOMA
     Dosage: ON DAY 1 AND 8 OF CYCLE 1
     Route: 041
  6. FLUDARABINE [Suspect]
     Active Substance: FLUDARABINE PHOSPHATE
     Indication: B-CELL LYMPHOMA
     Dosage: DAY 2?4
     Route: 065

REACTIONS (21)
  - Thrombocytopenia [Unknown]
  - Flushing [Unknown]
  - Peripheral sensory neuropathy [Unknown]
  - Fatigue [Unknown]
  - Dizziness [Unknown]
  - Hypersensitivity [Unknown]
  - Pancytopenia [Unknown]
  - Myelodysplastic syndrome [Fatal]
  - Acute myeloid leukaemia [Fatal]
  - Dyspnoea [Unknown]
  - Face oedema [Unknown]
  - Diarrhoea [Unknown]
  - Neutropenia [Unknown]
  - Myalgia [Unknown]
  - Chills [Unknown]
  - Pain [Unknown]
  - Chest pain [Unknown]
  - Neoplasm malignant [Unknown]
  - Diffuse large B-cell lymphoma [Unknown]
  - Infection [Unknown]
  - Constipation [Unknown]
